FAERS Safety Report 11294247 (Version 1)
Quarter: 2015Q3

REPORT INFORMATION
  Report Type: Spontaneous
  Country: US (occurrence: US)
  Receive Date: 20150722
  Receipt Date: 20150722
  Transmission Date: 20151125
  Serious: No
  Sender: FDA-Public Use
  Company Number: US-ELI_LILLY_AND_COMPANY-US200802006699

PATIENT
  Sex: Female

DRUGS (1)
  1. EVISTA [Suspect]
     Active Substance: RALOXIFENE HYDROCHLORIDE
     Dosage: 60 MG, UNK
     Dates: start: 2005, end: 20080128

REACTIONS (3)
  - Erythema [Recovering/Resolving]
  - Skin burning sensation [Recovered/Resolved]
  - Hyperhidrosis [Recovering/Resolving]
